FAERS Safety Report 12891290 (Version 1)
Quarter: 2016Q4

REPORT INFORMATION
  Report Type: Spontaneous
  Country: US (occurrence: US)
  Receive Date: 20161026
  Receipt Date: 20161026
  Transmission Date: 20170207
  Serious: No
  Sender: FDA-Public Use
  Company Number: None

PATIENT
  Age: 72 Year
  Sex: Female
  Weight: 98.1 kg

DRUGS (10)
  1. METOPROLOL TARTRATE. [Concomitant]
     Active Substance: METOPROLOL TARTRATE
  2. ASPIRIN. [Concomitant]
     Active Substance: ASPIRIN
  3. HTZ [Concomitant]
  4. CLONIDINE HCL [Concomitant]
     Active Substance: CLONIDINE HYDROCHLORIDE
  5. DHA OMEGA-3 [Concomitant]
  6. ROSUVASTATIN CALCIUM APOTEX CORP [Suspect]
     Active Substance: ROSUVASTATIN CALCIUM
     Indication: BLOOD CHOLESTEROL INCREASED
     Dosage: ?          QUANTITY:1 TABLET(S);?
     Route: 048
     Dates: start: 20160906, end: 20161024
  7. VITAMINE D-3 [Concomitant]
  8. CLOPIDOGREL [Concomitant]
     Active Substance: CLOPIDOGREL BISULFATE
  9. LISINOPRIL. [Concomitant]
     Active Substance: LISINOPRIL
  10. EPA OMEGA-3 [Concomitant]

REACTIONS (8)
  - Gait disturbance [None]
  - Fatigue [None]
  - Musculoskeletal stiffness [None]
  - Confusional state [None]
  - Arthralgia [None]
  - Asthenia [None]
  - Balance disorder [None]
  - Myalgia [None]

NARRATIVE: CASE EVENT DATE: 20161017
